FAERS Safety Report 22042014 (Version 4)
Quarter: 2025Q3

REPORT INFORMATION
  Report Type: Report from Study
  Country: US (occurrence: US)
  Receive Date: 20230227
  Receipt Date: 20250710
  Transmission Date: 20251021
  Serious: Yes (Other)
  Sender: JAZZ
  Company Number: US-JAZZ PHARMACEUTICALS-2023-US-004327

PATIENT
  Sex: Female
  Weight: 63.5 kg

DRUGS (2)
  1. EPIDIOLEX [Suspect]
     Active Substance: CANNABIDIOL
     Indication: Seizure
     Dates: start: 20220413
  2. EPIDIOLEX [Suspect]
     Active Substance: CANNABIDIOL
     Dosage: 1.6 MILLILITER, BID
     Route: 048

REACTIONS (3)
  - Chapped lips [Unknown]
  - Lip dry [Unknown]
  - Lip swelling [Unknown]
